FAERS Safety Report 12098497 (Version 8)
Quarter: 2016Q4

REPORT INFORMATION
  Report Type: Report from Study
  Country: CA (occurrence: CA)
  Receive Date: 20160222
  Receipt Date: 20161230
  Transmission Date: 20170206
  Serious: Yes (Other)
  Sender: FDA-Public Use
  Company Number: CA-ROCHE-1177725

PATIENT
  Age: 50 Year
  Sex: Female
  Weight: 70 kg

DRUGS (23)
  1. VITAMIN C [Concomitant]
     Active Substance: ASCORBIC ACID
  2. LEFLUNOMIDE. [Concomitant]
     Active Substance: LEFLUNOMIDE
  3. ZOPICLONE [Concomitant]
     Active Substance: ZOPICLONE
  4. PREDNISONE. [Concomitant]
     Active Substance: PREDNISONE
  5. LANSOPRAZOLE. [Concomitant]
     Active Substance: LANSOPRAZOLE
  6. ACTEMRA [Suspect]
     Active Substance: TOCILIZUMAB
     Indication: RHEUMATOID ARTHRITIS
     Route: 042
     Dates: start: 20110308
  7. PREVACID [Concomitant]
     Active Substance: LANSOPRAZOLE
  8. ETANERCEPT [Concomitant]
     Active Substance: ETANERCEPT
  9. NAPROXEN. [Concomitant]
     Active Substance: NAPROXEN
  10. TOPIRAMATE. [Concomitant]
     Active Substance: TOPIRAMATE
  11. DICLOFENAC [Concomitant]
     Active Substance: DICLOFENAC
  12. TOPAMAX [Concomitant]
     Active Substance: TOPIRAMATE
  13. VERAPAMIL [Concomitant]
     Active Substance: VERAPAMIL HYDROCHLORIDE
  14. IMITREX [Concomitant]
     Active Substance: SUMATRIPTAN SUCCINATE
     Route: 065
  15. OMEGA 3 [Concomitant]
     Active Substance: OMEGA-3 FATTY ACIDS
  16. BIOTENE (LYSOZYME, LACTOFERRIN, GLUCOSE OXIDASE) [Concomitant]
     Dosage: LOW DOSE AS NEEDED
     Route: 065
  17. METHOTREXATE. [Concomitant]
     Active Substance: METHOTREXATE
  18. PANTOPRAZOLE [Concomitant]
     Active Substance: PANTOPRAZOLE SODIUM
  19. SUMATRIPTAN. [Concomitant]
     Active Substance: SUMATRIPTAN
  20. FOLIC ACID. [Concomitant]
     Active Substance: FOLIC ACID
  21. TRIAMCINOLONE [Concomitant]
     Active Substance: TRIAMCINOLONE
  22. MELOXICAM. [Concomitant]
     Active Substance: MELOXICAM
  23. CHOLECALCIFEROL [Concomitant]
     Active Substance: CHOLECALCIFEROL

REACTIONS (9)
  - Hypertension [Unknown]
  - Hepatic steatosis [Unknown]
  - Heart rate increased [Recovering/Resolving]
  - Tooth extraction [Not Recovered/Not Resolved]
  - Blood pressure increased [Unknown]
  - Blood pressure increased [Unknown]
  - Rash [Unknown]
  - Basal cell carcinoma [Unknown]
  - Infusion related reaction [Unknown]

NARRATIVE: CASE EVENT DATE: 20130104
